FAERS Safety Report 15594784 (Version 4)
Quarter: 2018Q4

REPORT INFORMATION
  Report Type: Report from Study
  Country: GB (occurrence: GB)
  Receive Date: 20181107
  Receipt Date: 20181213
  Transmission Date: 20190205
  Serious: Yes (Hospitalization)
  Sender: FDA-Public Use
  Company Number: PHHY2018GB078795

PATIENT
  Age: 58 Year
  Sex: Female

DRUGS (1)
  1. KISQALI [Suspect]
     Active Substance: RIBOCICLIB
     Indication: BREAST CANCER METASTATIC
     Dosage: 600 MG, QD
     Route: 048
     Dates: start: 20180802

REACTIONS (24)
  - Abdominal distension [Unknown]
  - Headache [Unknown]
  - Joint swelling [Unknown]
  - Vertigo [Unknown]
  - Dyspnoea [Unknown]
  - Constipation [Not Recovered/Not Resolved]
  - Food poisoning [Unknown]
  - Tremor [Unknown]
  - Contusion [Unknown]
  - Pruritus [Unknown]
  - Nausea [Recovered/Resolved]
  - Dizziness postural [Unknown]
  - Nausea [Unknown]
  - Muscle spasms [Unknown]
  - Lethargy [Unknown]
  - Blood calcium decreased [Unknown]
  - Malaise [Not Recovered/Not Resolved]
  - Skin discolouration [Unknown]
  - Diarrhoea [Not Recovered/Not Resolved]
  - Pain in extremity [Unknown]
  - Dehydration [Recovering/Resolving]
  - Insomnia [Unknown]
  - Fatigue [Unknown]
  - Peripheral swelling [Unknown]

NARRATIVE: CASE EVENT DATE: 20180802
